FAERS Safety Report 5992753-6 (Version None)
Quarter: 2008Q4

REPORT INFORMATION
  Report Type: 
  Country: None (occurrence: None)
  Receive Date: 20081211
  Receipt Date: 20080528
  Transmission Date: 20090506
  Serious: No
  Sender: FDA-Public Use
  Company Number: US-AMGEN-KDL282892

PATIENT
  Sex: Male

DRUGS (2)
  1. ENBREL [Suspect]
     Indication: PSORIATIC ARTHROPATHY
     Route: 058
  2. ENBREL [Suspect]
     Indication: PSORIASIS

REACTIONS (6)
  - DRY SKIN [None]
  - INJECTION SITE IRRITATION [None]
  - PAIN IN EXTREMITY [None]
  - PSORIASIS [None]
  - PSORIATIC ARTHROPATHY [None]
  - TOOTH ABSCESS [None]
